FAERS Safety Report 7535377-1 (Version None)
Quarter: 2011Q2

REPORT INFORMATION
  Report Type: 
  Country: None (occurrence: None)
  Receive Date: 20110609
  Receipt Date: 20080317
  Transmission Date: 20111010
  Serious: Yes (Death)
  Sender: FDA-Public Use
  Company Number: PHHY2008CA03322

PATIENT
  Sex: Female

DRUGS (1)
  1. ZOMETA [Suspect]
     Indication: LUNG NEOPLASM MALIGNANT
     Dosage: 4 MG, EVERY 4 WEEKS
     Route: 042

REACTIONS (1)
  - DEATH [None]
